FAERS Safety Report 7170360-X (Version None)
Quarter: 2010Q4

REPORT INFORMATION
  Report Type: 
  Country: None (occurrence: None)
  Receive Date: 20101217
  Receipt Date: 20101207
  Transmission Date: 20110411
  Serious: Yes (Hospitalization, Other)
  Sender: FDA-Public Use
  Company Number: AU-ROCHE-746682

PATIENT
  Sex: Male

DRUGS (9)
  1. ACTEMRA [Suspect]
     Indication: RHEUMATOID ARTHRITIS
     Route: 042
     Dates: start: 20091201
  2. AMLODIPINE [Concomitant]
  3. DIAMICRON [Concomitant]
  4. ENALAPRIL MALEATE [Concomitant]
  5. MINAX [Concomitant]
  6. DIAFORMIN [Concomitant]
  7. LASIX [Concomitant]
  8. DURAGESIC-100 [Concomitant]
  9. ACETAMINOPHEN W/ CODEINE [Concomitant]

REACTIONS (2)
  - CEREBROVASCULAR ACCIDENT [None]
  - TESTICULAR SWELLING [None]
